FAERS Safety Report 5061601-3 (Version None)
Quarter: 2006Q3

REPORT INFORMATION
  Report Type: 
  Country: None (occurrence: None)
  Receive Date: 20060721
  Receipt Date: 20060705
  Transmission Date: 20061208
  Serious: Yes (Death)
  Sender: FDA-Public Use
  Company Number: DSA_28278_2006

PATIENT
  Age: 59 Year
  Sex: Female
  Weight: 76.6579 kg

DRUGS (6)
  1. CARDIZEM LA [Suspect]
     Indication: HYPERTENSION
     Dosage: DF ONCE
     Dates: start: 20060416, end: 20060416
  2. CARDIZEM LA [Suspect]
     Indication: HYPERTENSION
     Dosage: 360 MG Q DAY PO
     Route: 048
     Dates: start: 20060101, end: 20060416
  3. SYNTHROID [Concomitant]
  4. SPIRONOLACTONE W/ HYDROCHLOROTHIAZIDE [Concomitant]
  5. BIVACTIN MULTIVITAMIN WITH CALCIUM [Concomitant]
  6. OCUVITE LUTEIN /01605701/ [Concomitant]

REACTIONS (3)
  - ARRHYTHMIA [None]
  - DRUG TOXICITY [None]
  - PHARMACEUTICAL PRODUCT COMPLAINT [None]
